FAERS Safety Report 18689045 (Version 2)
Quarter: 2021Q1

REPORT INFORMATION
  Report Type: Spontaneous
  Country: ES (occurrence: ES)
  Receive Date: 20201231
  Receipt Date: 20210108
  Transmission Date: 20210419
  Serious: Yes (Hospitalization)
  Sender: FDA-Public Use
  Company Number: ES-STRIDES ARCOLAB LIMITED-2020SP016534

PATIENT
  Age: 2 Year
  Sex: Male
  Weight: 10.84 kg

DRUGS (13)
  1. COLECALCIFEROL [Suspect]
     Active Substance: CHOLECALCIFEROL
     Indication: HEREDITARY HYPOPHOSPHATAEMIC RICKETS
     Dosage: UNK
     Route: 065
  2. CINACALCET. [Suspect]
     Active Substance: CINACALCET
     Indication: HEREDITARY HYPOPHOSPHATAEMIC RICKETS
     Dosage: 2.5 MILLIGRAM PER DAY
     Route: 065
  3. CINACALCET. [Suspect]
     Active Substance: CINACALCET
     Dosage: 6.5 MILLIGRAM PER DAY
     Route: 065
  4. CALCIUM [Concomitant]
     Active Substance: CALCIUM
     Indication: HEREDITARY HYPOPHOSPHATAEMIC RICKETS
     Dosage: 1500 MILLIGRAM PER DAY
     Route: 065
  5. CALCITRIOL. [Concomitant]
     Active Substance: CALCITRIOL
     Dosage: UNK, PROGRESSIVELY INCREASED TO SUPRATHERAPEUTIC LEVEL
     Route: 065
  6. CINACALCET. [Suspect]
     Active Substance: CINACALCET
     Dosage: 2.5 MILLIGRAM PER DAY
     Route: 065
  7. CALCIFEDIOL [Concomitant]
     Active Substance: CALCIFEDIOL
     Indication: HEREDITARY HYPOPHOSPHATAEMIC RICKETS
     Dosage: 300 MICROGRAM PER DAY
     Route: 065
  8. CALCIUM [Concomitant]
     Active Substance: CALCIUM
     Dosage: UNK, PROGRESSIVELY INCREASED TO SUPRATHERAPEUTIC LEVEL
     Route: 065
  9. CALCIUM [Concomitant]
     Active Substance: CALCIUM
     Dosage: 3 GRAM PER DAY
     Route: 065
  10. CALCITRIOL. [Concomitant]
     Active Substance: CALCITRIOL
     Indication: HEREDITARY HYPOPHOSPHATAEMIC RICKETS
     Dosage: UNK
     Route: 065
  11. CALCIUM [Concomitant]
     Active Substance: CALCIUM
     Dosage: 1000 MILLIGRAM PER DAY
     Route: 065
  12. CALCITRIOL. [Concomitant]
     Active Substance: CALCITRIOL
     Dosage: 30 MICROGRAM PER DAY
     Route: 065
  13. CALCIUM [Concomitant]
     Active Substance: CALCIUM
     Dosage: UP TO 3000 MILLIGRAM PER DAY
     Route: 065

REACTIONS (2)
  - Hypercalciuria [Unknown]
  - Off label use [Unknown]
